FAERS Safety Report 6612778-7 (Version None)
Quarter: 2010Q1

REPORT INFORMATION
  Report Type: 
  Country: None (occurrence: None)
  Receive Date: 20100223
  Receipt Date: 20100210
  Transmission Date: 20100710
  Serious: Yes (Life-Threatening)
  Sender: FDA-Public Use
  Company Number: 2010005751

PATIENT
  Age: 72 Year
  Sex: Male

DRUGS (7)
  1. DALTEPARIN SODIUM [Suspect]
     Dates: start: 20091130
  2. ONDANSETRON [Concomitant]
  3. DEXAMETHASONE TAB [Concomitant]
  4. METOCLOPRAMIDE [Concomitant]
  5. CIPROFLOXACIN [Concomitant]
  6. GEMCITABINE [Concomitant]
  7. CARBOPLATIN [Concomitant]

REACTIONS (5)
  - LUNG NEOPLASM MALIGNANT [None]
  - MALIGNANT NEOPLASM PROGRESSION [None]
  - NEUTROPHIL COUNT INCREASED [None]
  - NORMOCHROMIC NORMOCYTIC ANAEMIA [None]
  - PLATELET COUNT INCREASED [None]
